FAERS Safety Report 9281747 (Version 4)
Quarter: 2013Q4

REPORT INFORMATION
  Report Type: Spontaneous
  Country: US (occurrence: US)
  Receive Date: 20130510
  Receipt Date: 20131011
  Transmission Date: 20140711
  Serious: Yes (Hospitalization)
  Sender: FDA-Public Use
  Company Number: US-B.I. PHARMACEUTICALS,INC./RIDGEFIELD-2013-BI-13010BP

PATIENT
  Age: 73 Year
  Sex: Female
  Weight: 73.48 kg

DRUGS (13)
  1. PRADAXA [Suspect]
     Indication: ANTICOAGULANT THERAPY
     Dosage: 300 MG
     Route: 048
     Dates: start: 20120203, end: 20120620
  2. PRADAXA [Suspect]
     Dosage: 300 MG
     Route: 048
     Dates: start: 20120703, end: 20120716
  3. ASPIRIN [Concomitant]
  4. ATORVASTATIN [Concomitant]
     Dates: start: 20120103
  5. BENAZEPRIL [Concomitant]
     Dosage: 40 MG
     Route: 048
     Dates: start: 2006
  6. BUMETANIDE [Concomitant]
     Dosage: 2 MG
     Route: 048
  7. CARVEDILOL [Concomitant]
     Dosage: 50 MG
     Route: 048
     Dates: start: 20120203
  8. CELEBREX [Concomitant]
     Dosage: 200 MG
     Route: 048
     Dates: start: 20120203
  9. NAMENDA [Concomitant]
     Dosage: 10 MG
     Route: 048
     Dates: start: 20120105
  10. NEXIUM [Concomitant]
     Dosage: 40 MG
     Route: 048
     Dates: start: 2008, end: 2012
  11. OSCAL [Concomitant]
  12. NITROSTAT [Concomitant]
     Route: 060
  13. DILANTIN [Concomitant]
     Dosage: 300 MG
     Route: 048

REACTIONS (5)
  - Subdural haematoma [Unknown]
  - Hypertension [Unknown]
  - Epistaxis [Recovered/Resolved]
  - Anaemia [Unknown]
  - Thrombocytopenia [Unknown]
